FAERS Safety Report 11361206 (Version 4)
Quarter: 2016Q3

REPORT INFORMATION
  Report Type: Spontaneous
  Country: US (occurrence: US)
  Receive Date: 20150810
  Receipt Date: 20160808
  Transmission Date: 20161109
  Serious: No
  Sender: FDA-Public Use
  Company Number: US-BAUSCH-2015ST000068

PATIENT
  Age: 45 Year
  Sex: Female

DRUGS (6)
  1. RUCONEST [Suspect]
     Active Substance: HUMAN C1-ESTERASE INHIBITOR
     Dosage: USED FOR TWO UNSUCCESFUL ATTEMPTS AND ONE SUCCESFUL ATTEMPT
     Route: 042
  2. RUCONEST [Suspect]
     Active Substance: HUMAN C1-ESTERASE INHIBITOR
     Dosage: AS NEEDED
     Route: 042
     Dates: start: 20150813, end: 20150813
  3. RUCONEST [Suspect]
     Active Substance: HUMAN C1-ESTERASE INHIBITOR
     Dosage: AS NEEDED
     Route: 042
     Dates: start: 20160416, end: 20160416
  4. RUCONEST [Suspect]
     Active Substance: HUMAN C1-ESTERASE INHIBITOR
     Dosage: AT A DOSE OF 4200IU
     Route: 042
  5. RUCONEST [Suspect]
     Active Substance: HUMAN C1-ESTERASE INHIBITOR
     Indication: HEREDITARY ANGIOEDEMA
     Dosage: AS NEEDED
     Route: 042
     Dates: start: 20150315, end: 20150315
  6. RUCONEST [Suspect]
     Active Substance: HUMAN C1-ESTERASE INHIBITOR
     Dosage: AS NEEDED
     Route: 042
     Dates: start: 20150419, end: 20150419

REACTIONS (12)
  - Herpes virus infection [Recovered/Resolved]
  - Somnolence [Recovered/Resolved]
  - Nervousness [Recovered/Resolved]
  - Upper respiratory tract infection [Unknown]
  - Haematoma [Unknown]
  - Fatigue [Unknown]
  - Rash [Recovering/Resolving]
  - Injection site extravasation [Unknown]
  - Feeling abnormal [Recovered/Resolved]
  - Sinus disorder [Unknown]
  - Menorrhagia [Recovered/Resolved]
  - Dyspnoea [Recovering/Resolving]

NARRATIVE: CASE EVENT DATE: 20150419
